FAERS Safety Report 4987048-3 (Version None)
Quarter: 2006Q2

REPORT INFORMATION
  Report Type: 
  Country: None (occurrence: None)
  Receive Date: 20060501
  Receipt Date: 20060420
  Transmission Date: 20061013
  Serious: Yes (Other)
  Sender: FDA-Public Use
  Company Number: PHBS2006IN06191

PATIENT
  Age: 59 Year
  Sex: Male

DRUGS (6)
  1. MONIT [Concomitant]
     Dosage: 10 MG, BID
  2. ECOSPRIN [Concomitant]
     Dosage: 75 MG, BID
  3. VALSARTAN [Concomitant]
     Dosage: 12.5 MG, BID
  4. VORTH-P [Concomitant]
     Dosage: 20 MG, UNK
  5. ZEVIT [Concomitant]
     Dosage: 1 DF, QD
  6. VOVERAN [Suspect]
     Indication: MYALGIA

REACTIONS (10)
  - BLISTER [None]
  - BLOOD PRESSURE INCREASED [None]
  - BURNING SENSATION [None]
  - CHILLS [None]
  - FURUNCLE [None]
  - PAIN [None]
  - PHARMACEUTICAL PRODUCT COMPLAINT [None]
  - PURPURA [None]
  - PYREXIA [None]
  - RASH PUSTULAR [None]
